FAERS Safety Report 6984865-5 (Version None)
Quarter: 2010Q3

REPORT INFORMATION
  Report Type: 
  Country: None (occurrence: None)
  Receive Date: 20100915
  Receipt Date: 20100908
  Transmission Date: 20110219
  Serious: Yes (Hospitalization, Other)
  Sender: FDA-Public Use
  Company Number: GB-BRISTOL-MYERS SQUIBB COMPANY-15272875

PATIENT
  Age: 35 Year
  Sex: Female
  Weight: 54 kg

DRUGS (20)
  1. ARIPIPRAZOLE [Suspect]
     Route: 065
  2. DIHYDROCODEINE BITARTRATE INJ [Suspect]
     Indication: BACK PAIN
     Dosage: 30MG TABS 1-2TDS, RECEIVED ON 23-SEP-2009
     Route: 065
  3. LAMICTAL [Suspect]
     Indication: EPILEPSY
     Dosage: TABS
     Route: 048
     Dates: start: 20040101
  4. LANSOPRAZOLE [Suspect]
     Route: 065
     Dates: start: 20100730
  5. PROPRANOLOL HYDROCHLORIDE [Suspect]
     Route: 065
     Dates: start: 20100730
  6. SERTRALINE HYDROCHLORIDE [Suspect]
     Dosage: RECEIVED ON 30-JUL-2010
     Route: 065
  7. NORETHISTERONE [Suspect]
     Indication: BACK PAIN
     Dosage: RECEIVED ON 23-SEP-2009
     Route: 065
  8. AMOXICILLIN [Concomitant]
     Dates: start: 20091023
  9. BETAMETHASONE [Concomitant]
     Route: 045
     Dates: start: 20090722
  10. CHLORAMPHENICOL [Concomitant]
     Dates: start: 20090722
  11. CLOBAZAM [Concomitant]
  12. AMPICILLIN SODIUM/SULBACTAM SODIUM [Concomitant]
     Dates: start: 20100328
  13. DICLOFENAC SODIUM [Concomitant]
     Dates: start: 20090501
  14. FOLIC ACID [Concomitant]
     Dates: start: 20091130
  15. LACTULOSE [Concomitant]
     Dates: start: 20090506
  16. LIDOCAINE [Concomitant]
  17. MICONAZOLE [Concomitant]
  18. TPN [Concomitant]
  19. OMEPRAZOLE [Concomitant]
     Dates: start: 20090501
  20. PROCHLORPERAZINE [Concomitant]
     Indication: NAUSEA
     Dates: start: 20091221

REACTIONS (5)
  - CHOLESTASIS OF PREGNANCY [None]
  - CONVULSION [None]
  - LIVE BIRTH [None]
  - PREGNANCY [None]
  - PREMATURE LABOUR [None]
